FAERS Safety Report 9615699 (Version 1)
Quarter: 2013Q4

REPORT INFORMATION
  Report Type: Spontaneous
  Country: US (occurrence: None)
  Receive Date: 20131010
  Receipt Date: 20131010
  Transmission Date: 20140711
  Serious: No
  Sender: FDA-Public Use
  Company Number: None

PATIENT
  Age: 56 Year
  Sex: Female
  Weight: 99.79 kg

DRUGS (5)
  1. SUMATRIPTAN [Suspect]
     Indication: MIGRAINE
     Dosage: ONE AT A TIME AS NEEDED, ?STILL TAKING A FORM OF IT,?TWO YEARS AGO
     Route: 048
  2. PROPONAL [Concomitant]
  3. FOCALIN [Concomitant]
  4. VITAMIN D [Concomitant]
  5. RESERVATROL [Concomitant]

REACTIONS (4)
  - Wrong technique in drug usage process [None]
  - Drug ineffective [None]
  - Product quality issue [None]
  - Product quality issue [None]
